FAERS Safety Report 13403720 (Version 3)
Quarter: 2018Q2

REPORT INFORMATION
  Report Type: Spontaneous
  Country: BE (occurrence: BE)
  Receive Date: 20170404
  Receipt Date: 20180601
  Transmission Date: 20180711
  Serious: Yes (Life-Threatening, Other)
  Sender: FDA-Public Use
  Company Number: BE-ROCHE-1915938

PATIENT
  Age: 76 Year
  Sex: Female

DRUGS (1)
  1. CEFTRIAXONE. [Suspect]
     Active Substance: CEFTRIAXONE
     Indication: LYME DISEASE
     Dosage: SINGLE DOSE OF FOUR GRAMS, GIVEN TWICE A WEEK DURING 20 CONSECUTIVE WEEKS
     Route: 042

REACTIONS (4)
  - Autoimmune haemolytic anaemia [Recovering/Resolving]
  - Acute kidney injury [Recovered/Resolved]
  - Diarrhoea [Unknown]
  - Pigment nephropathy [Recovered/Resolved]
